FAERS Safety Report 14892943 (Version 1)
Quarter: 2018Q2

REPORT INFORMATION
  Report Type: Spontaneous
  Country: TR (occurrence: TR)
  Receive Date: 20180514
  Receipt Date: 20180514
  Transmission Date: 20180711
  Serious: Yes (Other)
  Sender: FDA-Public Use
  Company Number: TR-BAYER-2018-087095

PATIENT
  Age: 59 Year
  Sex: Male
  Weight: 92 kg

DRUGS (1)
  1. CORASPIN 100 MG [Suspect]
     Active Substance: ASPIRIN
     Indication: CARDIOVASCULAR EVENT PROPHYLAXIS
     Dosage: 100 MG, QD
     Route: 048
     Dates: start: 19950101, end: 20180101

REACTIONS (16)
  - Epistaxis [Recovered/Resolved with Sequelae]
  - Diarrhoea [Recovering/Resolving]
  - Frequent bowel movements [Recovering/Resolving]
  - Therapeutic response unexpected [Recovering/Resolving]
  - Abdominal pain upper [Recovering/Resolving]
  - Gastrooesophageal reflux disease [Recovering/Resolving]
  - Cerebral infarction [None]
  - Intentional product use issue [None]
  - Gastrointestinal pain [Recovering/Resolving]
  - Oesophageal obstruction [Recovering/Resolving]
  - Back pain [Recovered/Resolved with Sequelae]
  - Irritable bowel syndrome [Recovering/Resolving]
  - Ventricular extrasystoles [Recovering/Resolving]
  - Arrhythmia supraventricular [Recovering/Resolving]
  - Eructation [Recovering/Resolving]
  - Pharyngeal haemorrhage [Recovered/Resolved with Sequelae]

NARRATIVE: CASE EVENT DATE: 20180101
